FAERS Safety Report 4286743-1 (Version None)
Quarter: 2004Q1

REPORT INFORMATION
  Report Type: 
  Country: None (occurrence: None)
  Receive Date: 20040206
  Receipt Date: 20040123
  Transmission Date: 20041129
  Serious: Yes (Hospitalization)
  Sender: FDA-Public Use
  Company Number: CH-GLAXOSMITHKLINE-B0321027A

PATIENT
  Sex: Female

DRUGS (5)
  1. LAMICTAL [Suspect]
     Indication: AFFECTIVE DISORDER
     Route: 048
     Dates: start: 20030919, end: 20031020
  2. DEROXAT [Suspect]
     Indication: DEPRESSION
     Dosage: 20MG PER DAY
     Route: 048
     Dates: start: 20030828
  3. LORAZEPAM [Concomitant]
     Route: 048
     Dates: start: 20030828, end: 20031020
  4. AMOXICILLIN AND CLAVULANATE POTASSIUM [Concomitant]
     Indication: URINARY TRACT INFECTION
     Dosage: 2G PER DAY
     Route: 065
     Dates: start: 20031006, end: 20031008
  5. QUILONORM RETARD [Concomitant]
     Indication: AFFECTIVE DISORDER
     Dosage: 450MG VARIABLE DOSE
     Route: 048
     Dates: start: 20031023

REACTIONS (4)
  - CONDITION AGGRAVATED [None]
  - LEUKOPENIA [None]
  - NEUTROPENIA [None]
  - URINARY TRACT INFECTION [None]
